FAERS Safety Report 22166325 (Version 3)
Quarter: 2024Q3

REPORT INFORMATION
  Report Type: Spontaneous
  Country: US (occurrence: US)
  Receive Date: 20230403
  Receipt Date: 20240827
  Transmission Date: 20241017
  Serious: Yes (Hospitalization, Other)
  Sender: PFIZER
  Company Number: US-PFIZER INC-202300135901

PATIENT
  Age: 72 Year
  Sex: Female

DRUGS (4)
  1. BUTORPHANOL TARTRATE [Suspect]
     Active Substance: BUTORPHANOL TARTRATE
     Indication: Pain
     Dosage: 2 MG/ML, AS NEEDED
     Dates: start: 1983
  2. BUTORPHANOL TARTRATE [Suspect]
     Active Substance: BUTORPHANOL TARTRATE
     Indication: Multiple injuries
  3. WARFARIN [Concomitant]
     Active Substance: WARFARIN
     Indication: Artificial heart implant
     Dosage: 6 MILLIGRAMS,ONCE A DAY
  4. WARFARIN [Concomitant]
     Active Substance: WARFARIN
     Indication: Aortic valve disease

REACTIONS (8)
  - Cerebrovascular accident [Unknown]
  - Cerebral disorder [Unknown]
  - International normalised ratio decreased [Unknown]
  - Spinal operation [Unknown]
  - Cardiac operation [Unknown]
  - Fracture [Unknown]
  - Gastrointestinal disorder [Unknown]
  - Hypokinesia [Unknown]

NARRATIVE: CASE EVENT DATE: 20221118
